FAERS Safety Report 5883993-5 (Version None)
Quarter: 2008Q3

REPORT INFORMATION
  Report Type: 
  Country: None (occurrence: None)
  Receive Date: 20080915
  Receipt Date: 20080908
  Transmission Date: 20090109
  Serious: Yes (Life-Threatening)
  Sender: FDA-Public Use
  Company Number: B0537008A

PATIENT
  Age: 59 Year
  Sex: Male

DRUGS (1)
  1. AUGMENTIN '125' [Suspect]
     Dosage: 2G PER DAY
     Route: 048
     Dates: start: 20080806, end: 20080806

REACTIONS (5)
  - CYANOSIS [None]
  - DIZZINESS [None]
  - DYSPNOEA [None]
  - LIP OEDEMA [None]
  - PRURITUS [None]
